FAERS Safety Report 20983621 (Version 1)
Quarter: 2022Q2

REPORT INFORMATION
  Report Type: Spontaneous
  Country: US (occurrence: US)
  Receive Date: 20220620
  Receipt Date: 20220620
  Transmission Date: 20220721
  Serious: No
  Sender: FDA-Public Use
  Company Number: US-JNJFOC-20220636442

PATIENT
  Age: 37 Year
  Sex: Female
  Weight: 63.560 kg

DRUGS (1)
  1. STELARA [Suspect]
     Active Substance: USTEKINUMAB
     Indication: Crohn^s disease
     Route: 042
     Dates: start: 20220418

REACTIONS (6)
  - Urticaria [Unknown]
  - Chest discomfort [Unknown]
  - Ear discomfort [Unknown]
  - Exposure during pregnancy [Unknown]
  - Incorrect dose administered [Unknown]
  - Pruritus [Unknown]

NARRATIVE: CASE EVENT DATE: 20220418
